FAERS Safety Report 10476449 (Version 3)
Quarter: 2014Q4

REPORT INFORMATION
  Report Type: Spontaneous
  Country: US (occurrence: US)
  Receive Date: 20140925
  Receipt Date: 20141007
  Transmission Date: 20150528
  Serious: Yes (Hospitalization)
  Sender: FDA-Public Use
  Company Number: US-ACTELION-A-US2014-104967

PATIENT
  Age: 45 Year
  Sex: Male
  Weight: 90.25 kg

DRUGS (13)
  1. OPSUMIT [Suspect]
     Active Substance: MACITENTAN
     Indication: PULMONARY ARTERIAL HYPERTENSION
     Dosage: 10 MG, QD
     Route: 048
     Dates: start: 20140901, end: 20140915
  2. TYVASO [Suspect]
     Active Substance: TREPROSTINIL
     Indication: PULMONARY ARTERIAL HYPERTENSION
     Dosage: 28 NG/KG, PER MIN
     Route: 058
     Dates: start: 20140405
  3. DULERA [Concomitant]
     Active Substance: FORMOTEROL FUMARATE DIHYDRATE\MOMETASONE FUROATE
  4. LEVOTHYROXINE [Concomitant]
     Active Substance: LEVOTHYROXINE
  5. METOLAZONE. [Concomitant]
     Active Substance: METOLAZONE
  6. FUROSEMIDE. [Concomitant]
     Active Substance: FUROSEMIDE
  7. LYRICA [Concomitant]
     Active Substance: PREGABALIN
  8. OXYCODONE [Concomitant]
     Active Substance: OXYCODONE
  9. ALPRAZOLAM. [Concomitant]
     Active Substance: ALPRAZOLAM
  10. REMODULIN [Concomitant]
     Active Substance: TREPROSTINIL
  11. LOPERAMIDE [Concomitant]
     Active Substance: LOPERAMIDE
  12. ADCIRCA [Concomitant]
     Active Substance: TADALAFIL
  13. WARFARIN [Concomitant]
     Active Substance: WARFARIN

REACTIONS (9)
  - VIIth nerve paralysis [Recovering/Resolving]
  - Feeling abnormal [Recovering/Resolving]
  - Confusional state [Not Recovered/Not Resolved]
  - Slow speech [Recovering/Resolving]
  - Somnolence [Not Recovered/Not Resolved]
  - Burning sensation [Recovering/Resolving]
  - Neuralgia [Recovering/Resolving]
  - Sluggishness [Recovering/Resolving]
  - Dysarthria [Recovering/Resolving]

NARRATIVE: CASE EVENT DATE: 20140903
